FAERS Safety Report 6597648-5 (Version None)
Quarter: 2010Q1

REPORT INFORMATION
  Report Type: 
  Country: None (occurrence: None)
  Receive Date: 20100219
  Receipt Date: 20100219
  Transmission Date: 20100710
  Serious: Yes (Hospitalization)
  Sender: FDA-Public Use
  Company Number: None

PATIENT
  Sex: Female
  Weight: 57.1532 kg

DRUGS (2)
  1. DILAUDID [Suspect]
     Indication: BACK PAIN
     Dosage: 2 MG EVERY 4 HOURS SQ
     Route: 058
     Dates: start: 20100202, end: 20100202
  2. MORPHINE SULFATE [Concomitant]

REACTIONS (3)
  - ANGIOEDEMA [None]
  - DYSPHAGIA [None]
  - VOMITING [None]
